FAERS Safety Report 9523070 (Version 2)
Quarter: 2013Q3

REPORT INFORMATION
  Report Type: Spontaneous
  Country: US (occurrence: US)
  Receive Date: 20130913
  Receipt Date: 20130920
  Transmission Date: 20140515
  Serious: No
  Sender: FDA-Public Use
  Company Number: US-PFIZER INC-2013261681

PATIENT
  Sex: Male

DRUGS (2)
  1. ADVIL MIGRAINE [Suspect]
     Indication: LOWER RESPIRATORY TRACT INFECTION
     Dosage: 600 MG (THREE 200MG), ONCE A DAY
     Dates: start: 201309
  2. ADVIL MIGRAINE [Suspect]
     Indication: MIGRAINE

REACTIONS (2)
  - Overdose [Unknown]
  - Drug ineffective [Unknown]
